FAERS Safety Report 21227274 (Version 1)
Quarter: 2022Q3

REPORT INFORMATION
  Report Type: Spontaneous
  Country: CA (occurrence: None)
  Receive Date: 20220818
  Receipt Date: 20220818
  Transmission Date: 20221026
  Serious: Yes (Other)
  Sender: FDA-Public Use
  Company Number: CA-ROCHE-3160731

PATIENT
  Age: 52 Year
  Sex: Female
  Weight: 108 kg

DRUGS (21)
  1. RITUXIMAB [Suspect]
     Active Substance: RITUXIMAB
     Indication: Rheumatoid arthritis
     Route: 042
  2. ACETAMINOPHEN [Concomitant]
     Active Substance: ACETAMINOPHEN
     Route: 048
  3. CANAGLIFLOZIN [Concomitant]
     Active Substance: CANAGLIFLOZIN
     Route: 065
  4. CELEBREX [Concomitant]
     Active Substance: CELECOXIB
     Route: 065
  5. DIPHENHYDRAMINE [Concomitant]
     Active Substance: DIPHENHYDRAMINE
     Route: 048
  6. FLUCONAZOLE [Concomitant]
     Active Substance: FLUCONAZOLE
     Route: 065
  7. FOLIC ACID [Concomitant]
     Active Substance: FOLIC ACID
     Route: 065
  8. HYDROMORPHONE HYDROCHLORIDE [Concomitant]
     Active Substance: HYDROMORPHONE HYDROCHLORIDE
     Route: 048
  9. HYDROXYCHLOROQUINE SULFATE [Concomitant]
     Active Substance: HYDROXYCHLOROQUINE SULFATE
     Route: 065
  10. MAGNESIUM [Concomitant]
     Active Substance: MAGNESIUM
  11. METFORMIN HYDROCHLORIDE [Concomitant]
     Active Substance: METFORMIN HYDROCHLORIDE
     Route: 065
  12. METHOTREXATE [Concomitant]
     Active Substance: METHOTREXATE
     Route: 065
  13. METHYLPREDNISOLONE [Concomitant]
     Active Substance: METHYLPREDNISOLONE
     Route: 042
  14. METOPROLOL [Concomitant]
     Active Substance: METOPROLOL
     Route: 065
  15. PANTOPRAZOLE SODIUM [Concomitant]
     Active Substance: PANTOPRAZOLE SODIUM
  16. PREDNISONE [Concomitant]
     Active Substance: PREDNISONE
     Route: 065
  17. RISEDRONATE SODIUM [Concomitant]
     Active Substance: RISEDRONATE SODIUM
  18. ROSUVASTATIN [Concomitant]
     Active Substance: ROSUVASTATIN
     Route: 065
  19. SEMAGLUTIDE [Concomitant]
     Active Substance: SEMAGLUTIDE
     Route: 065
  20. ZINC [Concomitant]
     Active Substance: ZINC
  21. ZOPICLONE [Concomitant]
     Active Substance: ZOPICLONE
     Route: 065

REACTIONS (3)
  - Gastrointestinal disorder [Unknown]
  - Polypectomy [Unknown]
  - Tooth disorder [Unknown]
